FAERS Safety Report 20926975 (Version 1)
Quarter: 2022Q2

REPORT INFORMATION
  Report Type: Spontaneous
  Country: US (occurrence: US)
  Receive Date: 20220607
  Receipt Date: 20220607
  Transmission Date: 20220721
  Serious: Yes (Other)
  Sender: FDA-Public Use
  Company Number: US-FOUNDATIONCB-2022-US-012442

PATIENT
  Sex: 0

DRUGS (1)
  1. DRISTAN 12 HR NASAL SPRAY [Suspect]
     Active Substance: OXYMETAZOLINE HYDROCHLORIDE
     Indication: Nasal irrigation
     Dosage: 5 TO 6 TIMES DAILY
     Route: 045

REACTIONS (3)
  - Nasal necrosis [Unknown]
  - Cerebrospinal fluid leakage [Unknown]
  - Intentional product misuse [Unknown]
